FAERS Safety Report 25817131 (Version 1)
Quarter: 2025Q3

REPORT INFORMATION
  Report Type: Report from Study
  Country: AR (occurrence: AR)
  Receive Date: 20250918
  Receipt Date: 20250918
  Transmission Date: 20251020
  Serious: Yes (Hospitalization)
  Sender: ASTELLAS
  Company Number: AR-MONTEVERDE-AR-0804-20250905

PATIENT
  Age: 62 Year
  Sex: Male

DRUGS (2)
  1. ENFORTUMAB VEDOTIN-EJFV [Suspect]
     Active Substance: ENFORTUMAB VEDOTIN-EJFV
     Indication: Transitional cell carcinoma
     Dosage: POWDER FOR SOLUTION FOR INFUSION(200)
     Route: 042
     Dates: start: 20250904
  2. ENFORTUMAB VEDOTIN-EJFV [Suspect]
     Active Substance: ENFORTUMAB VEDOTIN-EJFV
     Dosage: POWDER FOR SOLUTION FOR INFUSION(200)
     Route: 042
     Dates: start: 20250822, end: 20250823

REACTIONS (4)
  - Nephrotic syndrome [Recovered/Resolved]
  - Urinary retention [Recovering/Resolving]
  - Haemorrhage urinary tract [Recovering/Resolving]
  - Diarrhoea [Recovered/Resolved]

NARRATIVE: CASE EVENT DATE: 20250823
